FAERS Safety Report 7952307-9 (Version None)
Quarter: 2011Q4

REPORT INFORMATION
  Report Type: 
  Country: None (occurrence: None)
  Receive Date: 20111201
  Receipt Date: 20111122
  Transmission Date: 20120403
  Serious: Yes (Death, Hospitalization, Other)
  Sender: FDA-Public Use
  Company Number: US-ACTELION-A-US2011-45936

PATIENT

DRUGS (2)
  1. TRACLEER [Suspect]
     Indication: PULMONARY ARTERIAL HYPERTENSION
     Dosage: UNK
     Route: 048
     Dates: start: 20090410, end: 20111115
  2. CHEMOTHERAPEUTICS [Concomitant]

REACTIONS (4)
  - BLADDER CANCER [None]
  - CAROTID ARTERY DISEASE [None]
  - RENAL CANCER [None]
  - NEPHRECTOMY [None]
